FAERS Safety Report 4369435-X (Version None)
Quarter: 2004Q2

REPORT INFORMATION
  Report Type: 
  Country: None (occurrence: None)
  Receive Date: 20040527
  Receipt Date: 20040518
  Transmission Date: 20050107
  Serious: No
  Sender: FDA-Public Use
  Company Number: 2004UW10340

PATIENT
  Age: 83 Year
  Sex: Female

DRUGS (2)
  1. DIPRIVAN [Suspect]
     Indication: PNEUMONIA
     Dates: start: 20040401
  2. GENTAMICIN [Concomitant]

REACTIONS (1)
  - AMNESIA [None]
